FAERS Safety Report 16274184 (Version 1)
Quarter: 2019Q2

REPORT INFORMATION
  Report Type: Spontaneous
  Country: US (occurrence: US)
  Receive Date: 20190504
  Receipt Date: 20190504
  Transmission Date: 20190711
  Serious: Yes (Hospitalization)
  Sender: FDA-Public Use
  Company Number: US-TEVA-2019-US-1043739

PATIENT
  Sex: Male

DRUGS (1)
  1. PROAIR HFA [Suspect]
     Active Substance: ALBUTEROL SULFATE
     Route: 065
     Dates: start: 20190323

REACTIONS (5)
  - Product quality issue [Unknown]
  - Asthma [Unknown]
  - Device issue [Unknown]
  - Dyspnoea [Unknown]
  - Product substitution issue [Unknown]
